FAERS Safety Report 9728360 (Version 1)
Quarter: 2013Q4

REPORT INFORMATION
  Report Type: Spontaneous
  Country: US (occurrence: US)
  Receive Date: 20131204
  Receipt Date: 20131204
  Transmission Date: 20140711
  Serious: Yes (Other)
  Sender: FDA-Public Use
  Company Number: US-JNJFOC-20131200485

PATIENT
  Sex: Female

DRUGS (1)
  1. TOPIRAMATE [Suspect]
     Indication: CONVULSION
     Route: 048

REACTIONS (4)
  - Convulsion [Unknown]
  - Nephrolithiasis [Recovered/Resolved]
  - Hypocitraturia [Unknown]
  - pH urine increased [Unknown]
